FAERS Safety Report 4515731-2 (Version None)
Quarter: 2004Q4

REPORT INFORMATION
  Report Type: 
  Country: None (occurrence: None)
  Receive Date: 20041116
  Receipt Date: 20041103
  Transmission Date: 20050328
  Serious: Yes (Hospitalization, Other)
  Sender: FDA-Public Use
  Company Number: HQWYE265105NOV04

PATIENT
  Age: 52 Year
  Sex: Female
  Weight: 60.84 kg

DRUGS (4)
  1. NEUMEGA [Suspect]
     Indication: THROMBOCYTOPENIA
     Dosage: 50 MCG/KG DAILY, SUBCUTANEOUS
     Route: 058
     Dates: start: 20041011, end: 20041024
  2. NEUMEGA [Suspect]
     Indication: THROMBOCYTOPENIA
     Dosage: 50 MCG/KG DAILY, SUBCUTANEOUS
     Route: 058
     Dates: start: 20041106
  3. PROCRIT (ERYTHROPOIETIN) [Concomitant]
  4. HYCAMTIN (TOPOTECAN HYDROCHLORIDE) [Concomitant]

REACTIONS (7)
  - ATRIAL FLUTTER [None]
  - ATRIOVENTRICULAR BLOCK [None]
  - DYSPNOEA EXERTIONAL [None]
  - FATIGUE [None]
  - OEDEMA PERIPHERAL [None]
  - PLATELET COUNT DECREASED [None]
  - VENTRICULAR EXTRASYSTOLES [None]
